FAERS Safety Report 4954684-X (Version None)
Quarter: 2006Q1

REPORT INFORMATION
  Report Type: 
  Country: None (occurrence: None)
  Receive Date: 20060131
  Receipt Date: 20051026
  Transmission Date: 20060701
  Serious: No
  Sender: FDA-Public Use
  Company Number: WAES 0510USA09252

PATIENT
  Sex: Female

DRUGS (4)
  1. EMEND [Suspect]
     Indication: NAUSEA
     Dosage: SEE IMAGE
     Route: 048
     Dates: start: 20051001, end: 20051001
  2. EMEND [Suspect]
     Indication: NAUSEA
     Dosage: SEE IMAGE
     Route: 048
     Dates: start: 20051001, end: 20051001
  3. THERAPY UNSPECIFIED [Concomitant]
  4. DOXORUBICIN [Concomitant]

REACTIONS (3)
  - DRUG INEFFECTIVE [None]
  - INAPPROPRIATE SCHEDULE OF DRUG ADMINISTRATION [None]
  - NAUSEA [None]
